FAERS Safety Report 5105151-4 (Version None)
Quarter: 2006Q3

REPORT INFORMATION
  Report Type: 
  Country: None (occurrence: None)
  Receive Date: 20060914
  Receipt Date: 20060823
  Transmission Date: 20061208
  Serious: Yes (Death, Disabling)
  Sender: FDA-Public Use
  Company Number: JP-MERCK-0608USA06738

PATIENT
  Age: 58 Year
  Sex: Male

DRUGS (29)
  1. PEPCID [Suspect]
     Route: 042
     Dates: start: 20050822, end: 20050930
  2. PEPCID [Suspect]
     Route: 048
     Dates: start: 20051001, end: 20051019
  3. PREDONINE [Concomitant]
     Indication: LUNG TRANSPLANT
     Route: 042
     Dates: start: 20050822, end: 20050930
  4. IMURAN [Concomitant]
     Indication: LUNG TRANSPLANT
     Route: 042
     Dates: start: 20050823, end: 20050830
  5. LASIX [Concomitant]
     Route: 042
     Dates: start: 20050823, end: 20051021
  6. SANDIMMUNE [Suspect]
     Indication: LUNG TRANSPLANT
     Route: 065
     Dates: start: 20050823, end: 20050928
  7. TOBRACIN [Suspect]
     Route: 042
     Dates: start: 20050822, end: 20050828
  8. MODACIN [Suspect]
     Route: 042
     Dates: start: 20050822, end: 20050830
  9. NEO-MINOPHAGEN C [Concomitant]
     Route: 042
     Dates: start: 20050916, end: 20060204
  10. INOVAN [Concomitant]
     Route: 042
     Dates: start: 20051011, end: 20051102
  11. HUMULIN 70/30 [Concomitant]
     Route: 042
     Dates: start: 20051004, end: 20051103
  12. DIFLUCAN [Concomitant]
     Route: 048
     Dates: start: 20051001, end: 20051028
  13. NYSTATIN [Concomitant]
     Route: 048
     Dates: start: 20050920, end: 20051101
  14. SELBEX [Concomitant]
     Route: 048
     Dates: start: 20050921, end: 20051027
  15. URSO [Concomitant]
     Route: 048
     Dates: start: 20050926, end: 20051027
  16. PROPOFOL [Concomitant]
     Route: 042
     Dates: start: 20050930, end: 20051030
  17. DENOSINE [Concomitant]
     Route: 042
     Dates: start: 20050922, end: 20051010
  18. PROGRAF [Concomitant]
     Route: 048
     Dates: start: 20051011, end: 20051011
  19. PROGRAF [Concomitant]
     Route: 048
     Dates: start: 20051012, end: 20051012
  20. PROGRAF [Concomitant]
     Route: 048
     Dates: start: 20051013, end: 20051016
  21. PROGRAF [Concomitant]
     Route: 048
     Dates: start: 20051011, end: 20051011
  22. NEORAL [Suspect]
     Route: 048
     Dates: start: 20050929, end: 20051010
  23. NEORAL [Suspect]
     Route: 048
     Dates: start: 20051020, end: 20051021
  24. NEORAL [Suspect]
     Route: 048
     Dates: start: 20051022, end: 20051001
  25. SANDIMMUNE [Suspect]
     Route: 042
     Dates: start: 20050823, end: 20050928
  26. SANDIMMUNE [Suspect]
     Route: 042
     Dates: start: 20051022, end: 20051102
  27. CELLCEPT [Concomitant]
     Route: 048
     Dates: start: 20050830, end: 20051016
  28. CELLCEPT [Concomitant]
     Route: 048
     Dates: start: 20051017, end: 20060204
  29. PREDONINE [Concomitant]
     Route: 048
     Dates: start: 20051001, end: 20060204

REACTIONS (11)
  - BRAIN OEDEMA [None]
  - ERYTHROPENIA [None]
  - HAEMOLYTIC ANAEMIA [None]
  - HEPATIC FUNCTION ABNORMAL [None]
  - LEUKOENCEPHALOPATHY [None]
  - MULTI-ORGAN FAILURE [None]
  - PULMONARY HAEMATOMA [None]
  - RENAL DISORDER [None]
  - SEPSIS [None]
  - THROMBOCYTOPENIA [None]
  - THROMBOSIS [None]
